FAERS Safety Report 9028821 (Version 2)
Quarter: 2013Q3

REPORT INFORMATION
  Report Type: Report from Study
  Country: US (occurrence: US)
  Receive Date: 20130124
  Receipt Date: 20130701
  Transmission Date: 20140515
  Serious: Yes (Death, Hospitalization)
  Sender: FDA-Public Use
  Company Number: US-BRISTOL-MYERS SQUIBB COMPANY-16782914

PATIENT
  Age: 77 Year
  Sex: Female

DRUGS (20)
  1. APIXABAN [Suspect]
     Indication: THROMBOSIS PROPHYLAXIS
     Route: 048
     Dates: start: 20100729, end: 20120717
  2. LANOXIN [Concomitant]
     Dosage: DOSAGE 30DAYS,6, TABS
  3. ROPINIROLE [Concomitant]
  4. VITAMIN E [Concomitant]
     Dosage: 1DF = 400 UNIT
  5. VERAPAMIL HCL [Concomitant]
     Dosage: DOSAGE 30DAYS,6
  6. LIPITOR [Concomitant]
     Dosage: TABS,DOSAGE 30DAYS,6
  7. CALCIUM [Concomitant]
     Dosage: TABS
  8. MULTIVITAMINS [Concomitant]
     Dosage: CAPS
  9. VITAMIN B COMPLEX [Concomitant]
     Dosage: CAPS
  10. PREDNISONE [Concomitant]
     Dosage: TABS
  11. HYDROCHLOROTHIAZIDE [Concomitant]
  12. SPIRIVA [Concomitant]
     Dosage: HANDIHALER
  13. SYNTHROID [Concomitant]
     Dosage: TABS
  14. METHOTREXATE [Concomitant]
     Dosage: 6 TABS WEEKLY
  15. FOLIC ACID [Concomitant]
     Dosage: TABS
  16. ADVAIR DISKUS [Concomitant]
     Dosage: 1 DF = 250-50 UNIT NOT MENTIONED
  17. DIGOXIN [Concomitant]
  18. VITAMIN D [Concomitant]
  19. RECLAST [Concomitant]
     Dosage: YEARLY
  20. REQUIP [Concomitant]

REACTIONS (2)
  - Sepsis [Fatal]
  - Thrombotic stroke [Not Recovered/Not Resolved]
